FAERS Safety Report 9688850 (Version 1)
Quarter: 2013Q4

REPORT INFORMATION
  Report Type: Spontaneous
  Country: CL (occurrence: CL)
  Receive Date: 20131114
  Receipt Date: 20131114
  Transmission Date: 20140711
  Serious: Yes (Other)
  Sender: FDA-Public Use
  Company Number: CL-PFIZER INC-2013320484

PATIENT
  Sex: Female

DRUGS (3)
  1. XALATAN [Suspect]
     Indication: GLAUCOMA
     Dosage: UNK
     Route: 047
     Dates: start: 2004, end: 201305
  2. AMLODIPINE [Concomitant]
     Dosage: UNK
  3. ATORVASTATIN [Concomitant]

REACTIONS (2)
  - Cataract [Unknown]
  - Breast cancer [Unknown]
